FAERS Safety Report 22223168 (Version 1)
Quarter: 2023Q2

REPORT INFORMATION
  Report Type: Report from Study
  Country: MX (occurrence: MX)
  Receive Date: 20230418
  Receipt Date: 20230418
  Transmission Date: 20230721
  Serious: Yes (Death)
  Sender: FDA-Public Use
  Company Number: MX-002147023-NVSC2023MX087740

PATIENT
  Sex: Female
  Weight: 56 kg

DRUGS (1)
  1. EXFORGE [Suspect]
     Active Substance: AMLODIPINE BESYLATE\VALSARTAN
     Indication: Hypertension
     Dosage: 1 DOSAGE FORM, Q12H
     Route: 048
     Dates: start: 2020

REACTIONS (4)
  - Diabetic complication [Fatal]
  - Disease complication [Fatal]
  - Blood pressure increased [Fatal]
  - Off label use [Unknown]

NARRATIVE: CASE EVENT DATE: 20200101
